FAERS Safety Report 8951152 (Version 1)
Quarter: 2012Q4

REPORT INFORMATION
  Report Type: 
  Country: NL (occurrence: NL)
  Receive Date: 20121207
  Receipt Date: 20121207
  Transmission Date: 20130627
  Serious: Yes (Life-Threatening, Other)
  Sender: FDA-Public Use
  Company Number: NL-ROXANE LABORATORIES, INC.-2012-RO-02505RO

PATIENT
  Age: 36 Year
  Sex: Female

DRUGS (4)
  1. CYCLOPHOSPHAMIDE TABLETS USP [Suspect]
     Indication: BREAST CANCER
  2. 5-FLUOROURACIL [Suspect]
     Indication: BREAST CANCER
  3. EPIRUBICIN [Suspect]
     Indication: BREAST CANCER
  4. TRASTUZUMAB [Suspect]
     Indication: BREAST CANCER

REACTIONS (2)
  - Cardiac failure [Unknown]
  - Ejection fraction decreased [Unknown]
